FAERS Safety Report 16570509 (Version 3)
Quarter: 2022Q2

REPORT INFORMATION
  Report Type: Spontaneous
  Country: JP (occurrence: JP)
  Receive Date: 20190715
  Receipt Date: 20220624
  Transmission Date: 20220721
  Serious: Yes (Death, Hospitalization, Other)
  Sender: FDA-Public Use
  Company Number: JP-TEVA-2019-JP-1077734

PATIENT
  Age: 73 Year
  Sex: Female

DRUGS (9)
  1. PACLITAXEL [Suspect]
     Active Substance: PACLITAXEL
     Indication: Breast neoplasm
     Route: 065
  2. ZOLEDRONIC ACID [Suspect]
     Active Substance: ZOLEDRONIC ACID
     Indication: Breast neoplasm
     Dosage: 1 ADMINSITRATION
     Route: 065
  3. PACLITAXEL [Suspect]
     Active Substance: PACLITAXEL
     Indication: Breast neoplasm
     Dosage: INITIALLY SEVEN COURSES AND THEN FOUR COURSES; 1 ADMINISTRATION
     Route: 065
     Dates: start: 201405
  4. DENOSUMAB [Suspect]
     Active Substance: DENOSUMAB
     Indication: Breast neoplasm
     Route: 065
     Dates: start: 201510
  5. BEVACIZUMAB [Concomitant]
     Active Substance: BEVACIZUMAB
     Indication: Breast neoplasm
     Dosage: INITIALLY SEVEN COURSES AND THEN FOUR COURSES; 1 ADMINISTRATION
     Route: 065
     Dates: start: 201405
  6. LETROZOLE [Concomitant]
     Active Substance: LETROZOLE
     Indication: Breast neoplasm
     Route: 048
  7. DOXORUBICIN HYDROCHLORIDE [Concomitant]
     Active Substance: DOXORUBICIN HYDROCHLORIDE
     Indication: Breast neoplasm
     Dosage: RECEIVED 6 COURSES
     Route: 065
  8. CYCLOPHOSPHAMIDE [Concomitant]
     Active Substance: CYCLOPHOSPHAMIDE
     Indication: Breast neoplasm
     Dosage: RECEIVED 6 COURSES
     Route: 065
  9. FLUOROURACIL [Concomitant]
     Active Substance: FLUOROURACIL
     Indication: Breast neoplasm
     Dosage: RECEIVED 6 COURSES
     Route: 065

REACTIONS (14)
  - Osteonecrosis of jaw [Unknown]
  - Condition aggravated [Unknown]
  - Cellulitis [Unknown]
  - Swelling face [Unknown]
  - Subcutaneous abscess [Unknown]
  - Fistula [Unknown]
  - Streptococcal infection [Unknown]
  - Loss of consciousness [Not Recovered/Not Resolved]
  - Extradural abscess [Unknown]
  - Brain oedema [Unknown]
  - Cerebral mass effect [Unknown]
  - Pyrexia [Unknown]
  - Neuropathy peripheral [Recovered/Resolved]
  - Death [Fatal]

NARRATIVE: CASE EVENT DATE: 20150501
